FAERS Safety Report 8259364-3 (Version None)
Quarter: 2012Q2

REPORT INFORMATION
  Report Type: 
  Country: None (occurrence: None)
  Receive Date: 20120404
  Receipt Date: 20120327
  Transmission Date: 20120825
  Serious: Yes (Other)
  Sender: FDA-Public Use
  Company Number: US-BAYER-2011-078777

PATIENT
  Age: 54 Year
  Sex: Female
  Weight: 70.295 kg

DRUGS (4)
  1. YAZ [Suspect]
     Dosage: UNK
     Route: 048
     Dates: start: 20080125, end: 20090727
  2. FLUOXETINE [Concomitant]
     Dosage: 20 MG, UNK
  3. METHYLPREDNISOLONE [Concomitant]
     Dosage: 4 MG, UNK
  4. FLUONTIN [Concomitant]
     Indication: ANXIETY

REACTIONS (5)
  - PULMONARY EMBOLISM [None]
  - GENERAL PHYSICAL HEALTH DETERIORATION [None]
  - ANXIETY [None]
  - EMOTIONAL DISTRESS [None]
  - PAIN [None]
